FAERS Safety Report 24919828 (Version 1)
Quarter: 2025Q1

REPORT INFORMATION
  Report Type: Spontaneous
  Country: US (occurrence: US)
  Receive Date: 20250204
  Receipt Date: 20250204
  Transmission Date: 20250409
  Serious: No
  Sender: TARO
  Company Number: US-TARO PHARMACEUTICALS USA INC.-2024TAR02401

PATIENT

DRUGS (2)
  1. ADAPALENE [Suspect]
     Active Substance: ADAPALENE
     Indication: Acne
     Dosage: OD, ONCE AT NIGHT , LESS THEN DIME SIZE
     Route: 061
  2. METHYLPHENIDATE [Concomitant]
     Active Substance: METHYLPHENIDATE
     Indication: Attention deficit hyperactivity disorder
     Route: 065

REACTIONS (6)
  - Acne [Recovering/Resolving]
  - Drug ineffective [Unknown]
  - Scar [Recovering/Resolving]
  - Dry skin [Unknown]
  - Dermal cyst [Unknown]
  - Pigmentation disorder [Recovering/Resolving]
